FAERS Safety Report 26214663 (Version 1)
Quarter: 2025Q4

REPORT INFORMATION
  Report Type: Spontaneous
  Country: EU (occurrence: EU)
  Receive Date: 20251230
  Receipt Date: 20251230
  Transmission Date: 20260118
  Serious: Yes (Death, Other)
  Sender: BRISTOL-MYERS SQUIBB COMPANY
  Company Number: None

PATIENT
  Age: 70 Year
  Sex: Male
  Weight: 77 kg

DRUGS (9)
  1. ELIQUIS [Interacting]
     Active Substance: APIXABAN
     Indication: Product used for unknown indication
     Dosage: 1-0-1
     Route: 048
     Dates: end: 20251219
  2. PLAVIX [Interacting]
     Active Substance: CLOPIDOGREL BISULFATE
     Indication: Product used for unknown indication
     Dosage: 0-1-0
     Route: 048
  3. OCTAPLAS LG [Concomitant]
     Active Substance: PLASMA PROTEIN FRACTION (HUMAN)
     Indication: Arterial haemorrhage
     Route: 042
     Dates: start: 20251218, end: 20251218
  4. OCTAPLEX [Concomitant]
     Active Substance: COAGULATION FACTOR IX HUMAN\COAGULATION FACTOR VII HUMAN\COAGULATION FACTOR X HUMAN\PROTEIN C\PROTEI
     Indication: Arterial haemorrhage
     Dosage: 8 VIALS
     Route: 042
     Dates: start: 20251218, end: 20251218
  5. TOCILIZUMAB ((MAMMAL/HAMSTER/CHO CELLS)) TRASTUZUMAB ((MAMMAL/HAMSTER/ [Concomitant]
     Indication: Polymyalgia rheumatica
     Dosage: (13TH COURSE)
     Route: 042
     Dates: start: 20230202, end: 20251031
  6. METHOTREXATE SODIUM [Concomitant]
     Active Substance: METHOTREXATE SODIUM
     Indication: Polymyalgia rheumatica
     Route: 058
  7. PREDNISONE [Concomitant]
     Active Substance: PREDNISONE
     Indication: Polymyalgia rheumatica
     Route: 048
  8. EBASTINE [Concomitant]
     Active Substance: EBASTINE
     Indication: Product used for unknown indication
     Dosage: 1-0-0
     Route: 048
  9. SYMBICORT [Concomitant]
     Active Substance: BUDESONIDE\FORMOTEROL FUMARATE DIHYDRATE
     Indication: Chronic obstructive pulmonary disease
     Dosage: 2-0-2, STRENGTH: 400/12 MICROGRAMS/DOSE, FORM OF ADMIN: POWDER FOR INHALATION

REACTIONS (3)
  - Intra-abdominal haematoma [Fatal]
  - Hypovolaemic shock [Fatal]
  - Drug interaction [Unknown]

NARRATIVE: CASE EVENT DATE: 20251218
